FAERS Safety Report 10053578 (Version 1)
Quarter: 2014Q2

REPORT INFORMATION
  Report Type: Spontaneous
  Country: US (occurrence: US)
  Receive Date: 20140402
  Receipt Date: 20140402
  Transmission Date: 20141212
  Serious: No
  Sender: FDA-Public Use
  Company Number: US-PFIZER INC-2014089970

PATIENT
  Age: 71 Year
  Sex: Female

DRUGS (1)
  1. XALKORI [Suspect]
     Dosage: 250 MG, 2X/DAY
     Dates: start: 201403

REACTIONS (1)
  - Heart rate decreased [Unknown]
